FAERS Safety Report 4810562-8 (Version None)
Quarter: 2005Q4

REPORT INFORMATION
  Report Type: 
  Country: None (occurrence: None)
  Receive Date: 20051025
  Receipt Date: 20051025
  Transmission Date: 20060501
  Serious: Yes (Life-Threatening, Hospitalization)
  Sender: FDA-Public Use
  Company Number: None

PATIENT
  Sex: Female
  Weight: 79.8331 kg

DRUGS (1)
  1. MOXIFLOXACIN HCL [Suspect]
     Indication: PNEUMONIA
     Dosage: 400MG, 1 DOSE, ORAL
     Route: 048
     Dates: start: 20050907, end: 20050907

REACTIONS (9)
  - CARDIO-RESPIRATORY ARREST [None]
  - CORONARY ARTERY SURGERY [None]
  - EJECTION FRACTION DECREASED [None]
  - ELECTROCARDIOGRAM QT CORRECTED INTERVAL PROLONGED [None]
  - LOSS OF CONSCIOUSNESS [None]
  - OESOPHAGEAL INJURY [None]
  - SINUS TACHYCARDIA [None]
  - SUPRAVENTRICULAR TACHYCARDIA [None]
  - VENTRICULAR TACHYCARDIA [None]
